FAERS Safety Report 15986105 (Version 2)
Quarter: 2019Q3

REPORT INFORMATION
  Report Type: Other
  Country: CA (occurrence: CA)
  Receive Date: 20190220
  Receipt Date: 20190821
  Transmission Date: 20191004
  Serious: Yes (Other)
  Sender: FDA-Public Use
  Company Number: CA-PFIZER INC-2019072329

PATIENT
  Age: 72 Year
  Sex: Female

DRUGS (5)
  1. CARBOPLATIN. [Suspect]
     Active Substance: CARBOPLATIN
     Indication: LUNG ADENOCARCINOMA STAGE IV
     Dosage: 1 DF, (1 EVERY 3 WEEKS)
     Route: 065
     Dates: start: 20090430, end: 20090430
  2. VITAMIN C [Concomitant]
     Active Substance: ASCORBIC ACID
     Dosage: UNK
     Dates: start: 20090313, end: 20090602
  3. CARBOPLATIN. [Suspect]
     Active Substance: CARBOPLATIN
     Dosage: 1 DF,(1 EVERY 3 WEEKS)
     Route: 065
     Dates: start: 20090521, end: 20090521
  4. TAXOTERE [Suspect]
     Active Substance: DOCETAXEL
     Indication: LUNG ADENOCARCINOMA STAGE IV
     Dosage: 1 DF,(1 EVERY 3 WEEKS)
     Route: 065
     Dates: start: 20090430, end: 20090430
  5. TAXOTERE [Suspect]
     Active Substance: DOCETAXEL
     Dosage: 1 DF, (1 EVERY 3 WEEKS)
     Route: 065
     Dates: start: 20090521, end: 20090521

REACTIONS (3)
  - Hypomagnesaemia [Unknown]
  - Nausea [Unknown]
  - Cytopenia [Unknown]

NARRATIVE: CASE EVENT DATE: 2009
